FAERS Safety Report 6477482-7 (Version None)
Quarter: 2009Q4

REPORT INFORMATION
  Report Type: 
  Country: None (occurrence: None)
  Receive Date: 20091207
  Receipt Date: 20091116
  Transmission Date: 20100525
  Serious: Yes (Other)
  Sender: FDA-Public Use
  Company Number: US-SANOFI-AVENTIS-2009SA004270

PATIENT
  Sex: Male
  Weight: 77.11 kg

DRUGS (6)
  1. PLAVIX [Suspect]
     Indication: THROMBOSIS PROPHYLAXIS
     Route: 048
     Dates: start: 20040101
  2. PRILOSEC [Concomitant]
  3. METHOTREXATE [Concomitant]
     Indication: LYMPHOMA
  4. LOPRESSOR [Concomitant]
  5. FOLIC ACID [Concomitant]
  6. TYLENOL (CAPLET) [Concomitant]

REACTIONS (2)
  - GASTROINTESTINAL HAEMORRHAGE [None]
  - T-CELL LYMPHOMA [None]
